FAERS Safety Report 7184753-8 (Version None)
Quarter: 2010Q4

REPORT INFORMATION
  Report Type: 
  Country: None (occurrence: None)
  Receive Date: 20101222
  Receipt Date: 20101220
  Transmission Date: 20110411
  Serious: Yes (Hospitalization, Other)
  Sender: FDA-Public Use
  Company Number: US-PFIZER INC-2010175996

PATIENT
  Sex: Male
  Weight: 86.168 kg

DRUGS (6)
  1. NARDIL [Suspect]
     Dosage: UNK
     Route: 048
     Dates: start: 19940101, end: 20101107
  2. MARPLAN [Suspect]
     Dosage: UNK
  3. PARNATE [Suspect]
     Dosage: UNK
  4. DEMEROL [Suspect]
     Dosage: UNK
  5. XANAX [Concomitant]
     Indication: ANXIETY
     Dosage: 1 MG, 3X/DAY
     Route: 048
     Dates: start: 19840101
  6. VITAMINS [Concomitant]
     Dosage: UNK

REACTIONS (5)
  - BLOOD SODIUM DECREASED [None]
  - HALLUCINATION [None]
  - MOOD ALTERED [None]
  - OXYGEN SATURATION DECREASED [None]
  - PERSONALITY CHANGE [None]
